FAERS Safety Report 5764919-1 (Version None)
Quarter: 2008Q2

REPORT INFORMATION
  Report Type: 
  Country: None (occurrence: None)
  Receive Date: 20080611
  Receipt Date: 20080602
  Transmission Date: 20081010
  Serious: Yes (Hospitalization)
  Sender: FDA-Public Use
  Company Number: A0711055A

PATIENT
  Age: 32 Year
  Sex: Female
  Weight: 65.9 kg

DRUGS (4)
  1. LAMOTRIGINE [Suspect]
     Indication: EPILEPSY
     Route: 048
  2. VITAMIN AND MINERAL PRENATAL SUPPLEMENT W/ FOLIC ACID CAP [Concomitant]
     Route: 048
     Dates: start: 20060501, end: 20070201
  3. FOLIC ACID [Concomitant]
     Dosage: 4MG PER DAY
     Route: 048
  4. VITAMIN K TAB [Concomitant]
     Route: 048
     Dates: start: 20070101, end: 20070201

REACTIONS (5)
  - DRUG EXPOSURE DURING PREGNANCY [None]
  - HYPERTENSION [None]
  - NORMAL NEWBORN [None]
  - PRE-ECLAMPSIA [None]
  - PROTEIN URINE PRESENT [None]
